FAERS Safety Report 8886775 (Version 1)
Quarter: 2012Q4

REPORT INFORMATION
  Report Type: 
  Country: US (occurrence: US)
  Receive Date: 20121105
  Receipt Date: 20121105
  Transmission Date: 20130627
  Serious: Yes (Hospitalization)
  Sender: FDA-Public Use
  Company Number: US-INCYTE CORPORATION-2012IN002180

PATIENT
  Age: 64 Year
  Sex: Male

DRUGS (1)
  1. JAKAFI [Suspect]
     Dosage: 10 mg, qam + 15 mg, qpm
     Route: 048
     Dates: start: 20120823

REACTIONS (2)
  - Cardiac failure [Unknown]
  - Diuretic therapy [Unknown]
